FAERS Safety Report 22287113 (Version 1)
Quarter: 2023Q2

REPORT INFORMATION
  Report Type: Spontaneous
  Country: IL (occurrence: IL)
  Receive Date: 20230505
  Receipt Date: 20230505
  Transmission Date: 20230721
  Serious: Yes (Life-Threatening)
  Sender: FDA-Public Use
  Company Number: IL-JNJFOC-20230466777

PATIENT
  Age: 73 Year
  Sex: Female

DRUGS (1)
  1. HALDOL [Suspect]
     Active Substance: HALOPERIDOL
     Indication: Product used for unknown indication
     Dosage: HALDOL AMPOULIS
     Route: 065
     Dates: start: 20230429

REACTIONS (2)
  - Urticaria [Unknown]
  - Tachycardia [Unknown]
